FAERS Safety Report 4668886-3 (Version None)
Quarter: 2005Q2

REPORT INFORMATION
  Report Type: 
  Country: None (occurrence: None)
  Receive Date: 20050523
  Receipt Date: 20040614
  Transmission Date: 20051028
  Serious: Yes (Other)
  Sender: FDA-Public Use
  Company Number: PHBS2004BE07993

PATIENT
  Age: 54 Year
  Sex: Female

DRUGS (5)
  1. IBUPROFEN [Concomitant]
     Route: 048
  2. TAMOXIFEN [Concomitant]
     Dosage: 20 MG/D
     Dates: start: 20030901
  3. HORMONES AND RELATED AGENTS [Concomitant]
  4. ZOMETA [Suspect]
     Indication: METASTASES TO BONE
     Dosage: 4 MG
     Route: 042
     Dates: start: 20030127, end: 20030611
  5. MS CONTIN [Concomitant]
     Dosage: 60 MG/D
     Route: 048

REACTIONS (3)
  - GINGIVAL HYPERPLASIA [None]
  - METAPLASIA [None]
  - OSTEONECROSIS [None]
